FAERS Safety Report 5610762-3 (Version None)
Quarter: 2008Q1

REPORT INFORMATION
  Report Type: 
  Country: None (occurrence: None)
  Receive Date: 20080201
  Receipt Date: 20080125
  Transmission Date: 20080703
  Serious: Yes (Death, Life-Threatening, Hospitalization, Disabling, Other)
  Sender: FDA-Public Use
  Company Number: GB-ASTRAZENECA-2003GB01490

PATIENT
  Age: 29808 Day
  Sex: Female
  Weight: 84.6 kg

DRUGS (7)
  1. ARIMIDEX [Suspect]
     Indication: BREAST CANCER
     Route: 048
     Dates: start: 19980512
  2. NOLVADEX [Suspect]
     Indication: BREAST CANCER
     Route: 048
     Dates: start: 19980512
  3. ASACOL [Concomitant]
     Indication: COLITIS
     Dosage: STARTED PRE-TRIAL
     Route: 048
  4. FERROUS SULFATE TAB [Concomitant]
     Indication: ANAEMIA
     Route: 048
     Dates: start: 20001026
  5. PREDNISOLONE [Concomitant]
     Indication: COLITIS
     Dosage: STARTED PRE-TRIAL
     Route: 048
  6. LANSOPRAZOLE [Concomitant]
     Indication: DYSPEPSIA
     Route: 048
     Dates: start: 20030101
  7. COD LIVER OIL [Concomitant]
     Indication: ROUTINE HEALTH MAINTENANCE
     Dates: start: 19991001

REACTIONS (1)
  - GASTRIC CANCER [None]
